FAERS Safety Report 12820131 (Version 1)
Quarter: 2016Q4

REPORT INFORMATION
  Report Type: Report from Study
  Country: US (occurrence: US)
  Receive Date: 20161006
  Receipt Date: 20161006
  Transmission Date: 20170207
  Serious: No
  Sender: FDA-Public Use
  Company Number: US-AMGEN-USASL2015124444

PATIENT
  Age: 52 Year
  Sex: Female

DRUGS (3)
  1. PROLIA [Suspect]
     Active Substance: DENOSUMAB
     Indication: PRODUCT USED FOR UNKNOWN INDICATION
     Dosage: UNK
     Route: 065
  2. NATPARA (PARATHYROID HORMONE) [Suspect]
     Active Substance: PARATHYROID HORMONE
     Indication: PRODUCT USED FOR UNKNOWN INDICATION
     Dosage: 50 MUG, QD
     Route: 065
  3. VICODIN [Suspect]
     Active Substance: ACETAMINOPHEN\HYDROCODONE BITARTRATE
     Indication: PRODUCT USED FOR UNKNOWN INDICATION
     Route: 065

REACTIONS (12)
  - Malaise [Unknown]
  - Rash macular [Unknown]
  - Muscle spasms [Unknown]
  - Influenza like illness [Unknown]
  - Nausea [Unknown]
  - Body temperature abnormal [Unknown]
  - Erythema [Unknown]
  - Crying [Unknown]
  - Constipation [Unknown]
  - Pain [Unknown]
  - Contusion [Unknown]
  - Insomnia [Unknown]
